FAERS Safety Report 6674875-X (Version None)
Quarter: 2010Q2

REPORT INFORMATION
  Report Type: 
  Country: None (occurrence: None)
  Receive Date: 20100409
  Receipt Date: 20090120
  Transmission Date: 20101027
  Serious: Yes (Hospitalization)
  Sender: FDA-Public Use
  Company Number: US-PFIZER INC-2009157911

PATIENT
  Sex: Female
  Weight: 48.345 kg

DRUGS (7)
  1. OXALIPLATIN [Suspect]
     Indication: COLORECTAL CANCER
     Dosage: 126 MG, EVERY 2 WEEKS
     Route: 042
     Dates: start: 20090105, end: 20090105
  2. SUNITINIB MALATE [Suspect]
     Indication: COLORECTAL CANCER
     Dosage: 37.5 MG, 1X/DAY
     Route: 048
     Dates: start: 20090105, end: 20090116
  3. FLUOROURACIL [Suspect]
     Indication: COLORECTAL CANCER
     Dosage: 590 MG, EVERY 2 WEEKS
     Route: 040
     Dates: start: 20090105, end: 20090105
  4. FLUOROURACIL [Suspect]
     Dosage: 3550 MG, EVERY 2 WEEKS
     Route: 042
     Dates: start: 20090105, end: 20090105
  5. CALCIUM FOLINATE [Suspect]
     Indication: COLORECTAL CANCER
     Dosage: 590 MG, EVERY 2 WEEKS
     Route: 042
     Dates: start: 20090105, end: 20090105
  6. HYDROMORPHONE [Concomitant]
     Indication: PAIN
     Dosage: 4 MG, AS NEEDED
     Dates: start: 20090105
  7. FENTANYL [Concomitant]
     Indication: PAIN
     Dosage: 50MG, Q72H
     Dates: start: 20090101

REACTIONS (2)
  - BACTERAEMIA [None]
  - WOUND DEHISCENCE [None]
